FAERS Safety Report 25739640 (Version 1)
Quarter: 2025Q3

REPORT INFORMATION
  Report Type: Spontaneous
  Country: US (occurrence: US)
  Receive Date: 20250829
  Receipt Date: 20250829
  Transmission Date: 20251021
  Serious: No
  Sender: TEVA
  Company Number: US-TEVA-VS-3362590

PATIENT
  Age: 73 Year
  Sex: Female

DRUGS (1)
  1. TESTOSTERONE [Suspect]
     Active Substance: TESTOSTERONE
     Indication: Product used for unknown indication
     Dosage: 1%-05, ONCE EVERY MORNING,  5 ML EACH TIME
     Route: 065

REACTIONS (3)
  - Headache [Unknown]
  - Product use complaint [Unknown]
  - Skin irritation [Unknown]
